FAERS Safety Report 21987282 (Version 1)
Quarter: 2023Q1

REPORT INFORMATION
  Report Type: Spontaneous
  Country: US (occurrence: US)
  Receive Date: 20230213
  Receipt Date: 20230213
  Transmission Date: 20230418
  Serious: No
  Sender: FDA-Public Use
  Company Number: US-BAUSCHBL-2023BNL000944

PATIENT
  Sex: Female

DRUGS (1)
  1. DEXAMETHASONE\NEOMYCIN\POLYMYXIN B SULFATE [Suspect]
     Active Substance: DEXAMETHASONE\NEOMYCIN\POLYMYXIN B SULFATE
     Indication: Hordeolum
     Route: 047
     Dates: start: 202209

REACTIONS (3)
  - Instillation site irritation [Unknown]
  - Disease recurrence [Unknown]
  - Product quality issue [Unknown]
